FAERS Safety Report 4717834-6 (Version None)
Quarter: 2005Q3

REPORT INFORMATION
  Report Type: 
  Country: None (occurrence: None)
  Receive Date: 20050718
  Receipt Date: 20041227
  Transmission Date: 20060218
  Serious: No
  Sender: FDA-Public Use
  Company Number: 2004001046

PATIENT
  Age: 60 Year
  Sex: Female
  Weight: 106.5953 kg

DRUGS (7)
  1. TARCEVA [Suspect]
     Indication: THYROID GLAND CANCER
     Dosage: 150 MG (QD), ORAL
     Route: 048
     Dates: start: 20041217, end: 20041224
  2. LEVOTHYROXINE SODIUM [Concomitant]
  3. FEXOFENADINE HYDROCHLORIDE [Concomitant]
  4. FUROSEMIDE [Concomitant]
  5. GLUCOSAMINE [Concomitant]
  6. SPIRONOLACTONE [Concomitant]
  7. MULTIVITAMIN ^LAPPE^ [Concomitant]

REACTIONS (5)
  - DIARRHOEA [None]
  - DRY SKIN [None]
  - HAIR TEXTURE ABNORMAL [None]
  - NAUSEA [None]
  - RASH [None]
